FAERS Safety Report 5239822-6 (Version None)
Quarter: 2007Q1

REPORT INFORMATION
  Report Type: 
  Country: None (occurrence: None)
  Receive Date: 20070216
  Receipt Date: 20070216
  Transmission Date: 20070707
  Serious: Yes (Other)
  Sender: FDA-Public Use
  Company Number: HQWYE946216FEB07

PATIENT
  Sex: Male

DRUGS (2)
  1. UNIXIME [Suspect]
     Indication: PYREXIA
     Dosage: 400 MG PER DAY
     Route: 048
     Dates: start: 20070129, end: 20070203
  2. CARBOCISTEINE LYSINE [Suspect]
     Indication: PYREXIA
     Dosage: UNKNOWN
     Route: 048
     Dates: start: 20070129, end: 20070203

REACTIONS (2)
  - BRONCHOSPASM [None]
  - IDIOPATHIC URTICARIA [None]
